FAERS Safety Report 22126946 (Version 1)
Quarter: 2023Q1

REPORT INFORMATION
  Report Type: Report from Study
  Country: US (occurrence: US)
  Receive Date: 20230322
  Receipt Date: 20230322
  Transmission Date: 20230418
  Serious: Yes (Other)
  Sender: FDA-Public Use
  Company Number: US-BAUSCH-BL-2023-004442

PATIENT
  Age: 46 Year
  Sex: Female

DRUGS (1)
  1. SILIQ [Suspect]
     Active Substance: BRODALUMAB
     Indication: Psoriasis
     Dosage: 210 MG/1.5 ML, WEEK 0,1,2
     Route: 058

REACTIONS (3)
  - Haemorrhage [Unknown]
  - Pain [Unknown]
  - Muscular weakness [Unknown]
